FAERS Safety Report 8115184-1 (Version None)
Quarter: 2012Q1

REPORT INFORMATION
  Report Type: 
  Country: None (occurrence: None)
  Receive Date: 20120206
  Receipt Date: 20120130
  Transmission Date: 20120608
  Serious: Yes (Other)
  Sender: FDA-Public Use
  Company Number: US-JNJFOC-20120200022

PATIENT
  Sex: Female
  Weight: 68.04 kg

DRUGS (4)
  1. DURAGESIC-100 [Suspect]
     Route: 062
     Dates: start: 20000101
  2. FENTANYL-100 [Suspect]
     Indication: BACK PAIN
     Route: 062
  3. DURAGESIC-100 [Suspect]
     Indication: BACK PAIN
     Route: 062
     Dates: end: 20090101
  4. DURAGESIC-100 [Suspect]
     Route: 062
     Dates: start: 20090101

REACTIONS (4)
  - VOMITING [None]
  - ALLERGIC GRANULOMATOUS ANGIITIS [None]
  - APPLICATION SITE IRRITATION [None]
  - PAIN [None]
